FAERS Safety Report 6290751-9 (Version None)
Quarter: 2009Q3

REPORT INFORMATION
  Report Type: 
  Country: None (occurrence: None)
  Receive Date: 20090730
  Receipt Date: 20090721
  Transmission Date: 20100115
  Serious: Yes (Other)
  Sender: FDA-Public Use
  Company Number: PHHY2009JP28665

PATIENT
  Age: 54 Year
  Sex: Male

DRUGS (2)
  1. CYCLOSPORINE [Suspect]
     Indication: RENAL TRANSPLANT
     Dosage: UNK
  2. CLARITH [Interacting]
     Indication: HELICOBACTER INFECTION
     Dosage: 800 MG/DAY

REACTIONS (5)
  - GASTRIC ULCER [None]
  - HELICOBACTER INFECTION [None]
  - IMMUNOSUPPRESSANT DRUG LEVEL INCREASED [None]
  - INHIBITORY DRUG INTERACTION [None]
  - NEPHROPATHY TOXIC [None]
